FAERS Safety Report 21822824 (Version 1)
Quarter: 2023Q1

REPORT INFORMATION
  Report Type: Report from Study
  Country: EG (occurrence: EG)
  Receive Date: 20230105
  Receipt Date: 20230105
  Transmission Date: 20230417
  Serious: Yes (Other)
  Sender: FDA-Public Use
  Company Number: EG-002147023-NVSC2022EG302840

PATIENT
  Age: 51 Year
  Sex: Female

DRUGS (5)
  1. PIQRAY [Suspect]
     Active Substance: ALPELISIB
     Indication: Breast cancer metastatic
     Dosage: 2 DOSAGE FORM, QD
     Route: 048
     Dates: start: 20220807, end: 20221123
  2. PIQRAY [Suspect]
     Active Substance: ALPELISIB
     Indication: Metastases to liver
  3. PIQRAY [Suspect]
     Active Substance: ALPELISIB
     Indication: Metastases to bone
  4. XELODA [Concomitant]
     Active Substance: CAPECITABINE
     Indication: Product used for unknown indication
     Dosage: UNK, BID, (1,  (ONE WEEK ON AND ONE WEEK OFF)
     Route: 065
  5. CYCLOPHOSPHAMIDE [Concomitant]
     Active Substance: CYCLOPHOSPHAMIDE
     Indication: Product used for unknown indication
     Dosage: UNK, QD
     Route: 065

REACTIONS (2)
  - Product administration interrupted [Unknown]
  - Hyperglycaemia [Recovered/Resolved]

NARRATIVE: CASE EVENT DATE: 20221001
